FAERS Safety Report 4692765-9 (Version None)
Quarter: 2005Q2

REPORT INFORMATION
  Report Type: 
  Country: None (occurrence: None)
  Receive Date: 20050617
  Receipt Date: 20050613
  Transmission Date: 20051028
  Serious: Yes (Hospitalization)
  Sender: FDA-Public Use
  Company Number: PHBS2005NL08391

PATIENT
  Sex: Male

DRUGS (1)
  1. LEPONEX [Suspect]
     Dosage: 400 MG/D
     Route: 048
     Dates: start: 20050301

REACTIONS (5)
  - DILATATION VENTRICULAR [None]
  - LEUKOCYTOSIS [None]
  - MYOCARDITIS [None]
  - PERITONITIS [None]
  - PULMONARY EMBOLISM [None]
